FAERS Safety Report 14626011 (Version 1)
Quarter: 2018Q1

REPORT INFORMATION
  Report Type: Report from Study
  Country: US (occurrence: US)
  Receive Date: 20180312
  Receipt Date: 20180312
  Transmission Date: 20180509
  Serious: Yes (Other)
  Sender: FDA-Public Use
  Company Number: US-ASTELLAS-2018US012493

PATIENT
  Age: 72 Year

DRUGS (2)
  1. BEVACIZUMAB. [Suspect]
     Active Substance: BEVACIZUMAB
     Indication: BRAIN NEOPLASM MALIGNANT
     Route: 042
  2. ERLOTINIB [Suspect]
     Active Substance: ERLOTINIB
     Indication: BRAIN NEOPLASM MALIGNANT
     Dosage: 150 MG, ONCE DAILY (DOSE BASED UPON USE OF EIAED, EITHER 200 MG DAILY OR 500 MG DAILY)
     Route: 048

REACTIONS (3)
  - Seizure [Recovered/Resolved]
  - Muscular weakness [Recovered/Resolved]
  - Peripheral embolism [Recovered/Resolved]

NARRATIVE: CASE EVENT DATE: 20110512
